FAERS Safety Report 22013004 (Version 1)
Quarter: 2023Q1

REPORT INFORMATION
  Report Type: Spontaneous
  Country: US (occurrence: US)
  Receive Date: 20230220
  Receipt Date: 20230220
  Transmission Date: 20230418
  Serious: No
  Sender: FDA-Public Use
  Company Number: US-Merz Pharmaceuticals GmbH-23-00249

PATIENT
  Sex: Female

DRUGS (1)
  1. XEOMIN [Suspect]
     Active Substance: INCOBOTULINUMTOXINA
     Indication: Skin cosmetic procedure

REACTIONS (8)
  - Vessel perforation [Unknown]
  - Injection site mass [Unknown]
  - Muscle twitching [Unknown]
  - Ear discomfort [Unknown]
  - Drug ineffective [Unknown]
  - Injection site paraesthesia [Unknown]
  - Injection site pain [Unknown]
  - Off label use [Unknown]
